FAERS Safety Report 4645333-9 (Version None)
Quarter: 2005Q2

REPORT INFORMATION
  Report Type: 
  Country: None (occurrence: None)
  Receive Date: 20050331
  Receipt Date: 20041223
  Transmission Date: 20051028
  Serious: Yes (Hospitalization)
  Sender: FDA-Public Use
  Company Number: 04P-163-0284460-00

PATIENT
  Age: 65 Year
  Sex: Female
  Weight: 54.4316 kg

DRUGS (7)
  1. HUMIRA [Suspect]
     Indication: RHEUMATOID ARTHRITIS
     Dosage: 40 MG, 1 IN 2 WK, SUBCUTANEOUS
     Route: 058
     Dates: start: 20030101, end: 20040601
  2. HUMIRA [Suspect]
     Indication: RHEUMATOID ARTHRITIS
     Dosage: 40 MG, 1 IN 2 WK, SUBCUTANEOUS
     Route: 058
     Dates: start: 20040701
  3. CALCIUM GLUCONATE [Concomitant]
  4. PREDNISONE TAB [Concomitant]
  5. MULTI-VITAMINS [Concomitant]
  6. GLUCOSAMINE [Concomitant]
  7. SULENDAC [Concomitant]

REACTIONS (3)
  - CYSTITIS [None]
  - RASH MACULAR [None]
  - SINUSITIS [None]
